FAERS Safety Report 21057326 (Version 1)
Quarter: 2022Q3

REPORT INFORMATION
  Report Type: Other
  Country: IT (occurrence: IT)
  Receive Date: 20220708
  Receipt Date: 20220708
  Transmission Date: 20221026
  Serious: Yes (Death, Other)
  Sender: FDA-Public Use
  Company Number: IT-AMGEN-ITASP2022102623

PATIENT
  Age: 82 Year
  Sex: Female

DRUGS (4)
  1. BEVACIZUMAB [Suspect]
     Active Substance: BEVACIZUMAB
     Indication: Colorectal cancer metastatic
     Route: 065
  2. CAPECITABINE [Concomitant]
     Active Substance: CAPECITABINE
     Indication: Colorectal cancer metastatic
  3. CAPECITABINE\OXALIPLATIN [Concomitant]
     Active Substance: CAPECITABINE\OXALIPLATIN
     Dosage: UNK UNK, Q2WK
  4. OXALIPLATIN [Concomitant]
     Active Substance: OXALIPLATIN
     Indication: Colorectal cancer metastatic

REACTIONS (5)
  - Metastases to liver [Unknown]
  - Colorectal cancer metastatic [Unknown]
  - Gastrointestinal toxicity [Unknown]
  - Death [Fatal]
  - Asthenia [Unknown]
